FAERS Safety Report 9942772 (Version 1)
Quarter: 2014Q1

REPORT INFORMATION
  Report Type: Report from Study
  Country: US (occurrence: US)
  Receive Date: 20140303
  Receipt Date: 20140303
  Transmission Date: 20141002
  Serious: No
  Sender: FDA-Public Use
  Company Number: US-ABBVIE-13P-163-1044048-00

PATIENT
  Age: 45 Year
  Sex: Male
  Weight: 89.44 kg

DRUGS (1)
  1. HUMIRA [Suspect]
     Indication: PSORIASIS
     Route: 058
     Dates: start: 201207, end: 201212

REACTIONS (2)
  - Influenza [Not Recovered/Not Resolved]
  - Gingivitis [Recovered/Resolved]
